FAERS Safety Report 7984406-X (Version None)
Quarter: 2011Q4

REPORT INFORMATION
  Report Type: 
  Country: None (occurrence: None)
  Receive Date: 20111214
  Receipt Date: 20111206
  Transmission Date: 20120403
  Serious: Yes (Other)
  Sender: FDA-Public Use
  Company Number: AUR-APL-2011-06084

PATIENT
  Age: 38 Year
  Sex: Female

DRUGS (1)
  1. AMLODIPINE [Suspect]
     Indication: ESSENTIAL HYPERTENSION
     Dosage: 10 MG (10 MG, 1 IN 1 D)

REACTIONS (4)
  - PETECHIAE [None]
  - PALPABLE PURPURA [None]
  - ANXIETY [None]
  - RASH MACULAR [None]
